FAERS Safety Report 7606347-X (Version None)
Quarter: 2011Q3

REPORT INFORMATION
  Report Type: 
  Country: None (occurrence: None)
  Receive Date: 20110713
  Receipt Date: 20110704
  Transmission Date: 20111222
  Serious: Yes (Hospitalization)
  Sender: FDA-Public Use
  Company Number: ES-SANOFI-AVENTIS-2011SA042472

PATIENT
  Age: 85 Year
  Sex: Female
  Weight: 70 kg

DRUGS (8)
  1. FUROSEMIDE [Concomitant]
     Route: 048
  2. INSPRA [Suspect]
     Indication: CARDIAC FAILURE CONGESTIVE
     Dosage: TOMO UNA UNICA DOSIS
     Route: 048
     Dates: start: 20110324, end: 20110324
  3. OMEPRAZOLE [Concomitant]
     Route: 048
  4. EMCONCOR COR [Concomitant]
     Route: 048
  5. ATORVASTATIN [Suspect]
     Dosage: PAUTA POSOLOGICA: 0-0-1 (NO SE ESPECIFICA LA DOSIS)
     Route: 048
     Dates: start: 20080101, end: 20110324
  6. MULTAQ [Suspect]
     Indication: ATRIAL FIBRILLATION
     Route: 048
     Dates: start: 20110310, end: 20110324
  7. METHYLPREDNISOLONE [Concomitant]
     Dosage: 2 MG X 4 / WEEK
     Route: 048
  8. SINTROM [Concomitant]
     Route: 048

REACTIONS (4)
  - DIABETES MELLITUS [None]
  - HEPATIC NECROSIS [None]
  - METABOLIC ACIDOSIS [None]
  - RENAL FAILURE ACUTE [None]
